FAERS Safety Report 8885021 (Version 3)
Quarter: 2012Q4

REPORT INFORMATION
  Report Type: 
  Country: US (occurrence: US)
  Receive Date: 20121102
  Receipt Date: 20121109
  Transmission Date: 20130627
  Serious: Yes (Other)
  Sender: FDA-Public Use
  Company Number: US-PFIZER INC-2012272757

PATIENT
  Age: 91 Year
  Sex: Male

DRUGS (1)
  1. LYRICA [Suspect]
     Indication: POST HERPETIC NEURALGIA
     Dosage: 100 mg, 2x/day
     Route: 048
     Dates: start: 201207

REACTIONS (3)
  - Eye haemorrhage [Unknown]
  - Vision blurred [Unknown]
  - Visual impairment [Unknown]
